FAERS Safety Report 7310541-5 (Version None)
Quarter: 2011Q1

REPORT INFORMATION
  Report Type: 
  Country: None (occurrence: None)
  Receive Date: 20110224
  Receipt Date: 20101210
  Transmission Date: 20110831
  Serious: No
  Sender: FDA-Public Use
  Company Number: US-BRISTOL-MYERS SQUIBB COMPANY-15443435

PATIENT
  Age: 62 Year
  Sex: Female
  Weight: 84 kg

DRUGS (1)
  1. METFORMIN HCL [Suspect]
     Dosage: 1DF=5 METFORMIN A DAY
     Dates: end: 20100101

REACTIONS (1)
  - ABDOMINAL DISCOMFORT [None]
